FAERS Safety Report 7061587-6 (Version None)
Quarter: 2010Q4

REPORT INFORMATION
  Report Type: 
  Country: None (occurrence: None)
  Receive Date: 20101026
  Receipt Date: 20101015
  Transmission Date: 20110411
  Serious: Yes (Other)
  Sender: FDA-Public Use
  Company Number: JP-EISAI INC.-E3810-03873-SPO-JP

PATIENT
  Sex: Male
  Weight: 43 kg

DRUGS (7)
  1. PARIET (RABEPRAZOLE) [Suspect]
     Indication: REFLUX OESOPHAGITIS
     Route: 048
     Dates: start: 20100130, end: 20100215
  2. PERSANTIN [Concomitant]
     Indication: PROTEIN URINE
     Route: 048
     Dates: start: 20000925, end: 20100329
  3. CORINAEL L [Concomitant]
     Indication: HYPERTENSION
     Route: 048
     Dates: start: 20090428, end: 20100329
  4. KREMEZIN [Concomitant]
     Indication: RENAL FAILURE CHRONIC
     Route: 048
     Dates: start: 20071221, end: 20100326
  5. KERLONG [Concomitant]
     Indication: HYPERTENSION
     Route: 048
     Dates: start: 20000925, end: 20100329
  6. ARGAMATE [Concomitant]
     Indication: HYPERKALAEMIA
     Route: 048
     Dates: start: 20050511, end: 20100326
  7. PLETAL [Concomitant]
     Indication: ARTERIOSCLEROSIS OBLITERANS
     Route: 048
     Dates: start: 20100207, end: 20100305

REACTIONS (1)
  - HYPONATRAEMIA [None]
